FAERS Safety Report 5897615-0 (Version None)
Quarter: 2008Q3

REPORT INFORMATION
  Report Type: 
  Country: None (occurrence: None)
  Receive Date: 20080923
  Receipt Date: 20080417
  Transmission Date: 20090109
  Serious: Yes (Other)
  Sender: FDA-Public Use
  Company Number: 19137

PATIENT
  Age: 62 Year
  Sex: Female

DRUGS (6)
  1. METHOTREXATE SODIUM [Suspect]
     Indication: RHEUMATOID ARTHRITIS
     Dosage: 25 MG FREQ SC
     Route: 058
  2. ENBREL [Suspect]
     Indication: RHEUMATOID ARTHRITIS
     Dosage: 50 MG FREQ SC
     Route: 058
     Dates: start: 20041028
  3. CALCICHEW D3 [Concomitant]
  4. CELEBREX [Concomitant]
  5. FERROUS SULFATE TAB [Concomitant]
  6. GABAPENTIN [Concomitant]

REACTIONS (2)
  - RESPIRATORY TRACT INFECTION [None]
  - URINARY TRACT INFECTION [None]
